FAERS Safety Report 7812894-8 (Version None)
Quarter: 2011Q4

REPORT INFORMATION
  Report Type: 
  Country: None (occurrence: None)
  Receive Date: 20111013
  Receipt Date: 20110930
  Transmission Date: 20120403
  Serious: No
  Sender: FDA-Public Use
  Company Number: US-B.I. PHARMACEUTICALS,INC./RIDGEFIELD-2011-BP-20825BP

PATIENT
  Sex: Female

DRUGS (3)
  1. AGGRENOX [Suspect]
     Indication: TRANSIENT ISCHAEMIC ATTACK
  2. PRILOSEC [Concomitant]
  3. TEKTURNA [Concomitant]

REACTIONS (3)
  - POLLAKIURIA [None]
  - FATIGUE [None]
  - MOVEMENT DISORDER [None]
